FAERS Safety Report 4285358-9 (Version None)
Quarter: 2004Q1

REPORT INFORMATION
  Report Type: 
  Country: None (occurrence: None)
  Receive Date: 20040202
  Receipt Date: 20040123
  Transmission Date: 20041129
  Serious: Yes (Hospitalization)
  Sender: FDA-Public Use
  Company Number: J081-002-001437

PATIENT
  Age: 84 Year
  Sex: Female

DRUGS (5)
  1. ARICEPT [Suspect]
     Indication: SENILE DEMENTIA
     Dosage: 5 MG, 1 IN 1 D, ORAL
     Route: 048
     Dates: start: 20030513, end: 20030729
  2. GLYCYRON (GLYCYRON) [Suspect]
     Indication: HEPATIC FUNCTION ABNORMAL
     Dosage: 6 DOSAGE FORMS, ORAL
     Route: 048
     Dates: start: 20030604, end: 20030729
  3. AMLODIPINE BESYLATE [Concomitant]
  4. BLOPRESS (CANDESARTAN CILEXETIL) [Concomitant]
  5. LIPITOR [Concomitant]

REACTIONS (3)
  - BLOOD PRESSURE INCREASED [None]
  - OEDEMA PERIPHERAL [None]
  - THIRST [None]
